FAERS Safety Report 14945476 (Version 1)
Quarter: 2018Q2

REPORT INFORMATION
  Report Type: Report from Study
  Country: None (occurrence: US)
  Receive Date: 20180529
  Receipt Date: 20180529
  Transmission Date: 20180711
  Serious: Yes (Other)
  Sender: FDA-Public Use
  Company Number: US-BAUSCH-BL-2018-015148

PATIENT
  Sex: Female

DRUGS (1)
  1. UCERIS [Suspect]
     Active Substance: BUDESONIDE
     Indication: PRODUCT USED FOR UNKNOWN INDICATION
     Dosage: EXTENDED RELEASE
     Route: 065

REACTIONS (6)
  - Blood potassium decreased [Unknown]
  - Somnolence [Unknown]
  - Drug dose omission [Unknown]
  - Blood magnesium decreased [Unknown]
  - Malaise [Unknown]
  - Sluggishness [Unknown]
